FAERS Safety Report 17581910 (Version 1)
Quarter: 2020Q1

REPORT INFORMATION
  Report Type: Spontaneous
  Country: US (occurrence: US)
  Receive Date: 20200323
  Receipt Date: 20200323
  Transmission Date: 20200409
  Serious: Yes (Hospitalization)
  Sender: FDA-Public Use
  Company Number: None

PATIENT
  Age: 76 Year
  Sex: Female

DRUGS (12)
  1. CEFDINIR. [Concomitant]
     Active Substance: CEFDINIR
  2. DILTIAZEM. [Concomitant]
     Active Substance: DILTIAZEM
  3. PREDNISONE. [Concomitant]
     Active Substance: PREDNISONE
  4. TRIAMCINOLON CRE [Concomitant]
  5. CEFUROXIME. [Concomitant]
     Active Substance: CEFUROXIME
  6. ESBRIET [Suspect]
     Active Substance: PIRFENIDONE
     Indication: IDIOPATHIC PULMONARY FIBROSIS
     Route: 048
     Dates: start: 20190328
  7. BREO ELLIPTA [Concomitant]
     Active Substance: FLUTICASONE FUROATE\VILANTEROL TRIFENATATE
  8. DOXYCYCL HYC [Concomitant]
  9. ELIQUIS [Concomitant]
     Active Substance: APIXABAN
  10. XARELTO [Concomitant]
     Active Substance: RIVAROXABAN
  11. PROAIR HFA [Concomitant]
     Active Substance: ALBUTEROL SULFATE
  12. BENZONATATE. [Concomitant]
     Active Substance: BENZONATATE

REACTIONS (1)
  - Pneumonia [None]

NARRATIVE: CASE EVENT DATE: 20200220
